FAERS Safety Report 12160110 (Version 3)
Quarter: 2016Q2

REPORT INFORMATION
  Report Type: Spontaneous
  Country: FR (occurrence: FR)
  Receive Date: 20160308
  Receipt Date: 20160425
  Transmission Date: 20160815
  Serious: Yes (Hospitalization)
  Sender: FDA-Public Use
  Company Number: FR-PFIZER INC-2016134743

PATIENT
  Age: 34 Year
  Sex: Male

DRUGS (9)
  1. MEDROL [Suspect]
     Active Substance: METHYLPREDNISOLONE
     Dosage: 16 MG, DAILY
     Route: 048
     Dates: end: 20160205
  2. ADCETRIS [Suspect]
     Active Substance: BRENTUXIMAB VEDOTIN
     Dosage: 1.8 MG/KG, UNK
     Route: 042
     Dates: start: 20160205
  3. SMECTA /07327601/ [Concomitant]
     Dosage: UNK, AS NEEDED
     Route: 048
     Dates: end: 20160216
  4. MEDROL [Suspect]
     Active Substance: METHYLPREDNISOLONE
     Dosage: 16 MG, DAILY
     Route: 048
     Dates: start: 20160216, end: 20160216
  5. TIORFAN [Concomitant]
     Active Substance: RACECADOTRIL
     Dosage: 175 MG, 3X/DAY
     Route: 048
     Dates: end: 20160216
  6. DERMOVAL /00337102/ [Concomitant]
     Active Substance: CLOBETASOL PROPIONATE
     Dosage: 0.05 %,1 DF, 2X/DAY
  7. IMODIUM [Suspect]
     Active Substance: LOPERAMIDE HYDROCHLORIDE
     Dosage: 2 MG, 3X/DAY
     Route: 048
     Dates: end: 20160216
  8. SURGAM [Concomitant]
     Active Substance: TIAPROFENIC ACID
     Dosage: 200 MG, 2X/DAY
     Route: 048
     Dates: end: 20160216
  9. MEDROL [Suspect]
     Active Substance: METHYLPREDNISOLONE
     Dosage: 8 MG, DAILY
     Route: 048
     Dates: start: 20160215, end: 20160215

REACTIONS (3)
  - Pancreatitis acute [Not Recovered/Not Resolved]
  - Cholestasis [Not Recovered/Not Resolved]
  - Transaminases increased [Not Recovered/Not Resolved]

NARRATIVE: CASE EVENT DATE: 20160215
